FAERS Safety Report 9409210 (Version 1)
Quarter: 2013Q2

REPORT INFORMATION
  Report Type: Spontaneous
  Country: US (occurrence: None)
  Receive Date: 20130430
  Receipt Date: 20130430
  Transmission Date: 20140414
  Serious: Yes (Other)
  Sender: FDA-Public Use
  Company Number: ADR-2009-7362

PATIENT
  Age: 11 Year
  Sex: Female

DRUGS (1)
  1. LIORESAL INTRATHECAL (BACLOFEN INJECTION) 2000 MCG/ML [Suspect]
     Route: 037

REACTIONS (2)
  - Pseudomeningocele [None]
  - Ill-defined disorder [None]
